FAERS Safety Report 4462105-9 (Version None)
Quarter: 2004Q3

REPORT INFORMATION
  Report Type: 
  Country: None (occurrence: None)
  Receive Date: 20040929
  Receipt Date: 20040921
  Transmission Date: 20050211
  Serious: Yes (Other)
  Sender: FDA-Public Use
  Company Number: FR-ABBOTT-04P-056-0274498-00

PATIENT
  Age: 41 Year
  Sex: Female

DRUGS (5)
  1. NORVIR SOFT GELATIN CAPSULES [Suspect]
     Indication: HIV INFECTION
     Route: 048
     Dates: start: 20000906
  2. AMPRENAVIR [Suspect]
     Indication: HIV INFECTION
     Route: 048
     Dates: start: 20000604, end: 20040622
  3. TENOFOVIR [Suspect]
     Indication: HIV INFECTION
     Route: 048
     Dates: start: 20020910
  4. LAMIVUDINE [Suspect]
     Indication: HIV INFECTION
     Route: 048
     Dates: start: 20040310
  5. FOSAMPRENAVIR CALCIUM [Suspect]
     Indication: HIV INFECTION
     Route: 048
     Dates: start: 20040623

REACTIONS (3)
  - DRUG EXPOSURE DURING PREGNANCY [None]
  - INTRA-UTERINE DEATH [None]
  - PREGNANCY [None]
